FAERS Safety Report 25926734 (Version 1)
Quarter: 2025Q4

REPORT INFORMATION
  Report Type: Spontaneous
  Country: US (occurrence: US)
  Receive Date: 20251015
  Receipt Date: 20251015
  Transmission Date: 20260118
  Serious: No
  Sender: CALLIDITAS THERAPEUTICS AB
  Company Number: US-Calliditas-2025CAL02891

PATIENT
  Age: 46 Year
  Sex: Male

DRUGS (16)
  1. TARPEYO [Suspect]
     Active Substance: BUDESONIDE
     Indication: IgA nephropathy
     Route: 048
     Dates: start: 20240925, end: 20250924
  2. VITAMIN C [Concomitant]
     Active Substance: ASCORBIC ACID
  3. VITAMIN D3 [Concomitant]
     Active Substance: CHOLECALCIFEROL
  4. ZINC [Concomitant]
     Active Substance: ZINC
  5. FUROSEMIDE [Concomitant]
     Active Substance: FUROSEMIDE
  6. KEFLEX [Concomitant]
     Active Substance: CEPHALEXIN
  7. SODIUM GLUCONATE [Concomitant]
     Active Substance: SODIUM GLUCONATE
  8. ZOLOFT [Concomitant]
     Active Substance: SERTRALINE HYDROCHLORIDE
  9. ALLOPURINOL [Concomitant]
     Active Substance: ALLOPURINOL
  10. CLOMIPRAMINE [Concomitant]
     Active Substance: CLOMIPRAMINE
  11. CLOTRIMAZOLE [Concomitant]
     Active Substance: CLOTRIMAZOLE
  12. FENOFIBRATE [Concomitant]
     Active Substance: FENOFIBRATE
  13. LIPITOR [Concomitant]
     Active Substance: ATORVASTATIN CALCIUM
  14. LOVAZA [Concomitant]
     Active Substance: OMEGA-3-ACID ETHYL ESTERS
  15. MULTIVITAMINS WITH FLUORIDE [ASCORBIC ACID;CYANOCOBALAMIN;ERGOCALCI... [Concomitant]
  16. TESTOSTERONE [Concomitant]
     Active Substance: TESTOSTERONE

REACTIONS (8)
  - White blood cell count increased [Unknown]
  - Impaired healing [Unknown]
  - Fatigue [Unknown]
  - Lethargy [Unknown]
  - Asthenia [Unknown]
  - Abdominal pain upper [Unknown]
  - Appetite disorder [Unknown]
  - Pollakiuria [Unknown]

NARRATIVE: CASE EVENT DATE: 20250924
